FAERS Safety Report 8283721-2 (Version None)
Quarter: 2012Q2

REPORT INFORMATION
  Report Type: 
  Country: None (occurrence: None)
  Receive Date: 20120413
  Receipt Date: 20111021
  Transmission Date: 20120825
  Serious: No
  Sender: FDA-Public Use
  Company Number: US-ASTRAZENECA-2011SE63738

PATIENT
  Age: 93 Year
  Sex: Female
  Weight: 45.4 kg

DRUGS (2)
  1. ANTIBIOTIC [Concomitant]
  2. NEXIUM [Suspect]
     Indication: HELICOBACTER INFECTION
     Route: 048

REACTIONS (4)
  - ABDOMINAL PAIN UPPER [None]
  - ERUCTATION [None]
  - INAPPROPRIATE SCHEDULE OF DRUG ADMINISTRATION [None]
  - DRUG PRESCRIBING ERROR [None]
